FAERS Safety Report 18866654 (Version 6)
Quarter: 2021Q2

REPORT INFORMATION
  Report Type: Spontaneous
  Country: US (occurrence: US)
  Receive Date: 20210209
  Receipt Date: 20210427
  Transmission Date: 20210717
  Serious: No
  Sender: FDA-Public Use
  Company Number: US-BIOGEN-2019BI00683349

PATIENT
  Sex: Female

DRUGS (4)
  1. ASPIRIN. [Suspect]
     Active Substance: ASPIRIN
     Indication: PRODUCT USED FOR UNKNOWN INDICATION
     Route: 065
  2. TECFIDERA [Suspect]
     Active Substance: DIMETHYL FUMARATE
     Route: 065
     Dates: start: 20180227, end: 20210109
  3. TECFIDERA [Suspect]
     Active Substance: DIMETHYL FUMARATE
     Indication: MULTIPLE SCLEROSIS
     Dosage: STARTING DOSE
     Route: 050
     Dates: start: 20180227
  4. TECFIDERA [Suspect]
     Active Substance: DIMETHYL FUMARATE
     Dosage: MAINTENCE DOSE
     Route: 050
     Dates: end: 20210131

REACTIONS (9)
  - Hot flush [Recovered/Resolved]
  - Memory impairment [Unknown]
  - Contusion [Recovered/Resolved]
  - Migraine [Not Recovered/Not Resolved]
  - Gastritis [Unknown]
  - Weight increased [Unknown]
  - Cerebral disorder [Unknown]
  - Product dose omission issue [Unknown]
  - Malaise [Unknown]
